FAERS Safety Report 8165427-3 (Version None)
Quarter: 2012Q1

REPORT INFORMATION
  Report Type: 
  Country: None (occurrence: None)
  Receive Date: 20120227
  Receipt Date: 20120221
  Transmission Date: 20120608
  Serious: Yes (Life-Threatening, Hospitalization)
  Sender: FDA-Public Use
  Company Number: US-BAYER-2011-093715

PATIENT
  Sex: Female

DRUGS (5)
  1. LEXAPRO [Concomitant]
     Route: 048
  2. BENTYL [Concomitant]
  3. DROSPIRENONE AND ETHINYL ESTRADIOL [Suspect]
  4. YAZ [Suspect]
     Dosage: UNK
  5. YASMIN [Suspect]
     Dosage: UNK
     Dates: start: 20080101

REACTIONS (7)
  - PAIN [None]
  - GENERAL PHYSICAL HEALTH DETERIORATION [None]
  - THROMBOSIS [None]
  - COLITIS ISCHAEMIC [None]
  - ANXIETY [None]
  - ANHEDONIA [None]
  - INJURY [None]
